FAERS Safety Report 5372833-9 (Version None)
Quarter: 2007Q2

REPORT INFORMATION
  Report Type: 
  Country: None (occurrence: None)
  Receive Date: 20070620
  Receipt Date: 20070228
  Transmission Date: 20071010
  Serious: Yes (Other)
  Sender: FDA-Public Use
  Company Number: 484775

PATIENT
  Age: 46 Year
  Sex: Male

DRUGS (2)
  1. INTERFERON ALFA (INTERFERON ALFA) [Suspect]
     Indication: HEPATITIS C
     Dosage: 3 MILLIONIUM 3 PER WEEK
     Dates: start: 20010615
  2. RIBAVIRIN [Concomitant]

REACTIONS (1)
  - OBSESSIVE-COMPULSIVE DISORDER [None]
